FAERS Safety Report 12093252 (Version 2)
Quarter: 2016Q2

REPORT INFORMATION
  Report Type: Report from Study
  Country: BR (occurrence: BR)
  Receive Date: 20160219
  Receipt Date: 20160502
  Transmission Date: 20160815
  Serious: Yes (Other)
  Sender: FDA-Public Use
  Company Number: PHHY2016BR021507

PATIENT
  Sex: Male
  Weight: 68 kg

DRUGS (2)
  1. EXELON [Suspect]
     Active Substance: RIVASTIGMINE TARTRATE
     Indication: PRODUCT USED FOR UNKNOWN INDICATION
     Dosage: 1 DF, QD
     Route: 048
  2. EXELON PATCH [Suspect]
     Active Substance: RIVASTIGMINE
     Indication: PRODUCT USED FOR UNKNOWN INDICATION
     Dosage: PATCH 5 (CM2) (ONE PATCH AT NIGHT AFTER BATHING)
     Route: 062
     Dates: start: 20160212

REACTIONS (6)
  - Application site erythema [Recovered/Resolved]
  - Application site hypersensitivity [Recovered/Resolved]
  - Application site vesicles [Recovered/Resolved]
  - Parkinson^s disease [Unknown]
  - Application site pruritus [Recovered/Resolved]
  - Speech disorder [Unknown]
